FAERS Safety Report 14413357 (Version 2)
Quarter: 2018Q1

REPORT INFORMATION
  Report Type: Spontaneous
  Country: ES (occurrence: ES)
  Receive Date: 20180119
  Receipt Date: 20180119
  Transmission Date: 20180509
  Serious: Yes (Hospitalization)
  Sender: FDA-Public Use
  Company Number: PHHY2017ES192885

PATIENT
  Age: 16 Year
  Sex: Female

DRUGS (4)
  1. CICLOSPORIN [Suspect]
     Active Substance: CYCLOSPORINE
     Indication: CHRONIC GRAFT VERSUS HOST DISEASE
     Dosage: 60 MG, UNK
     Route: 048
     Dates: start: 20170327, end: 20170425
  2. URBASON [Suspect]
     Active Substance: METHYLPREDNISOLONE
     Indication: CHRONIC GRAFT VERSUS HOST DISEASE
     Dosage: 4 MG, UNK
     Route: 048
     Dates: start: 20170327, end: 20170425
  3. CICLOSPORIN [Suspect]
     Active Substance: CYCLOSPORINE
     Dosage: 40 MG, UNK
     Route: 048
     Dates: start: 20170425, end: 20170612
  4. URBASON [Suspect]
     Active Substance: METHYLPREDNISOLONE
     Dosage: 2 MG, UNK
     Route: 048
     Dates: start: 20170425, end: 20170612

REACTIONS (2)
  - Mixed liver injury [Recovered/Resolved]
  - Acute graft versus host disease in skin [Recovered/Resolved]

NARRATIVE: CASE EVENT DATE: 20170523
